FAERS Safety Report 4502981-4 (Version None)
Quarter: 2004Q4

REPORT INFORMATION
  Report Type: 
  Country: None (occurrence: None)
  Receive Date: 20041117
  Receipt Date: 20041019
  Transmission Date: 20050328
  Serious: Yes (Death, Life-Threatening, Hospitalization)
  Sender: FDA-Public Use
  Company Number: PHHO2004IT14769

PATIENT
  Age: 54 Year
  Sex: Male

DRUGS (2)
  1. FTY720 VS MYCOPHENOLATE MOFETIL [Suspect]
     Indication: RENAL TRANSPLANT
     Dosage: CODE NOT BROKEN
     Route: 048
     Dates: start: 20040605, end: 20041016
  2. NEORAL [Suspect]
     Indication: RENAL TRANSPLANT

REACTIONS (6)
  - MYCOBACTERIA SPUTUM TEST POSITIVE [None]
  - MYCOBACTERIAL INFECTION [None]
  - PNEUMOCYSTIS CARINII INFECTION [None]
  - PNEUMOCYSTIS CARINII PNEUMONIA [None]
  - PNEUMONITIS [None]
  - RESPIRATORY FAILURE [None]
